FAERS Safety Report 23462786 (Version 3)
Quarter: 2024Q1

REPORT INFORMATION
  Report Type: Spontaneous
  Country: US (occurrence: US)
  Receive Date: 20240131
  Receipt Date: 20240318
  Transmission Date: 20240410
  Serious: Yes (Hospitalization, Other)
  Sender: FDA-Public Use
  Company Number: US-BEH-2024168095

PATIENT
  Age: 55 Year
  Sex: Female
  Weight: 62 kg

DRUGS (33)
  1. HIZENTRA [Suspect]
     Active Substance: HUMAN IMMUNOGLOBULIN G
     Indication: Hypogammaglobulinaemia
     Dosage: 16 GRAM, QW
     Route: 058
     Dates: start: 201611, end: 202402
  2. HIZENTRA [Suspect]
     Active Substance: HUMAN IMMUNOGLOBULIN G
     Indication: Immunodeficiency common variable
     Dosage: 12 GRAM, QW
     Route: 058
     Dates: start: 202402
  3. REMICADE [Concomitant]
     Active Substance: INFLIXIMAB
     Indication: Rheumatoid arthritis
     Dosage: EVERY 2 MONTHS
     Route: 042
  4. PLAQUENIL [Concomitant]
     Active Substance: HYDROXYCHLOROQUINE SULFATE
     Indication: Rheumatoid arthritis
     Dosage: 200 MILLIGRAM, BID
     Route: 048
  5. XYZAL [Concomitant]
     Active Substance: LEVOCETIRIZINE DIHYDROCHLORIDE
     Dosage: 5 MILLIGRAM, QD
     Route: 048
  6. SODIUM CHLORIDE [Concomitant]
     Active Substance: SODIUM CHLORIDE
  7. ITRACONAZOLE [Concomitant]
     Active Substance: ITRACONAZOLE
  8. LEFLUNOMIDE [Concomitant]
     Active Substance: LEFLUNOMIDE
     Indication: Sjogren^s syndrome
     Dosage: 20 MILLIGRAM, QD
     Route: 048
  9. ZOLOFT [Concomitant]
     Active Substance: SERTRALINE HYDROCHLORIDE
     Indication: Depression
     Dosage: 50 MILLIGRAM, HS
     Route: 048
  10. ZOLOFT [Concomitant]
     Active Substance: SERTRALINE HYDROCHLORIDE
     Indication: Anxiety
  11. MIRTAZAPINE [Concomitant]
     Active Substance: MIRTAZAPINE
     Indication: Depression
     Dosage: UNK, HS
  12. MIRTAZAPINE [Concomitant]
     Active Substance: MIRTAZAPINE
     Indication: Anxiety
  13. CLONAZEPAM [Concomitant]
     Active Substance: CLONAZEPAM
     Indication: Anxiety
  14. CLONAZEPAM [Concomitant]
     Active Substance: CLONAZEPAM
     Indication: Depression
  15. CLONAZEPAM [Concomitant]
     Active Substance: CLONAZEPAM
     Indication: Anxiety
  16. ADVAIR HFA [Concomitant]
     Active Substance: FLUTICASONE PROPIONATE\SALMETEROL XINAFOATE
     Dosage: 230 MILLIGRAM, BID
     Route: 048
  17. ALBUTEROL SULFATE [Concomitant]
     Active Substance: ALBUTEROL SULFATE
     Dosage: 2 PUFFS EVERY 4 TO 6 HOURS
     Route: 048
  18. ARAVA [Concomitant]
     Active Substance: LEFLUNOMIDE
     Dosage: 20 MILLIGRAM, QD
     Route: 048
  19. AMLODIPINE [Concomitant]
     Active Substance: AMLODIPINE BESYLATE
     Dosage: 5 MILLIGRAM, QD
     Route: 048
  20. CELEBREX [Concomitant]
     Active Substance: CELECOXIB
     Dosage: 200 MILLIGRAM, QD
     Route: 048
  21. PLAVIX [Concomitant]
     Active Substance: CLOPIDOGREL BISULFATE
     Dosage: 75 MILLIGRAM, QD
     Route: 048
  22. DICLOFENAC SODIUM [Concomitant]
     Active Substance: DICLOFENAC\DICLOFENAC SODIUM
     Dosage: 1 DOSAGE FORM, QID
     Route: 061
  23. ERGOCALCIFEROL [Concomitant]
     Active Substance: ERGOCALCIFEROL
     Dosage: 5000 INTERNATIONAL UNIT, QD
  24. NEURONTIN [Concomitant]
     Active Substance: GABAPENTIN
     Dosage: 400 MILLIGRAM, TID
     Route: 048
  25. SYNTHROID [Concomitant]
     Active Substance: LEVOTHYROXINE SODIUM
     Dosage: 50 MICROGRAM, QD
  26. EMLA [Concomitant]
     Active Substance: LIDOCAINE\PRILOCAINE
     Dosage: 2.5 PERCENT, PRN
     Route: 061
  27. BIOFREEZE PAIN RELIEVING [Concomitant]
     Active Substance: MENTHOL
     Dosage: UNK, PRN
     Route: 061
  28. OMEPRAZOLE [Concomitant]
     Active Substance: OMEPRAZOLE
     Dosage: 40 MILLIGRAM, QD
     Route: 048
  29. SPIRIVA RESPIMAT [Concomitant]
     Active Substance: TIOTROPIUM BROMIDE
     Dosage: TWO PUFFS DAILY
     Route: 048
  30. KENALOG [Concomitant]
     Active Substance: TRIAMCINOLONE ACETONIDE
     Dosage: 0.1 PERCENT
     Route: 061
  31. QELBREE [Concomitant]
     Active Substance: VILOXAZINE HYDROCHLORIDE
     Dosage: 200 MILLIGRAM
     Route: 048
  32. DIPHENHYDRAMINE HYDROCHLORIDE [Concomitant]
     Active Substance: DIPHENHYDRAMINE HYDROCHLORIDE
     Indication: Multiple allergies
  33. DIPHENHYDRAMINE HYDROCHLORIDE [Concomitant]
     Active Substance: DIPHENHYDRAMINE HYDROCHLORIDE
     Indication: Multiple allergies

REACTIONS (10)
  - Pulmonary histoplasmosis [Recovering/Resolving]
  - Weight decreased [Unknown]
  - Dyspnoea [Recovering/Resolving]
  - Headache [Recovering/Resolving]
  - Tinnitus [Recovering/Resolving]
  - Heart rate decreased [Recovering/Resolving]
  - Anaemia [Unknown]
  - Productive cough [Not Recovered/Not Resolved]
  - No adverse event [Unknown]
  - Product use issue [Unknown]

NARRATIVE: CASE EVENT DATE: 20231101
